FAERS Safety Report 10346157 (Version 1)
Quarter: 2014Q3

REPORT INFORMATION
  Report Type: Report from Study
  Country: TN (occurrence: TN)
  Receive Date: 20140728
  Receipt Date: 20140728
  Transmission Date: 20150326
  Serious: Yes (Death)
  Sender: FDA-Public Use
  Company Number: TN-SA-2014SA098356

PATIENT
  Age: 54 Year
  Sex: Male

DRUGS (4)
  1. PLAVIX [Suspect]
     Active Substance: CLOPIDOGREL BISULFATE
     Indication: MYOCARDIAL INFARCTION
     Dosage: DOSE:75/D
     Route: 048
     Dates: start: 20140316, end: 20140328
  2. CINCOR [Concomitant]
     Route: 048
  3. KARDEGIC [Concomitant]
     Active Substance: ASPIRIN LYSINE
     Route: 048
  4. INSULIN [Concomitant]
     Active Substance: INSULIN NOS
     Route: 058

REACTIONS (3)
  - Hypertension [Fatal]
  - Dyslipidaemia [Fatal]
  - Cardiac arrest [Fatal]

NARRATIVE: CASE EVENT DATE: 20140328
